FAERS Safety Report 21549084 (Version 2)
Quarter: 2023Q1

REPORT INFORMATION
  Report Type: Spontaneous
  Country: KR (occurrence: KR)
  Receive Date: 20221103
  Receipt Date: 20230307
  Transmission Date: 20230418
  Serious: No
  Sender: FDA-Public Use
  Company Number: KR-002147023-NVSC2022KR247790

PATIENT
  Age: 75 Year
  Sex: Female

DRUGS (3)
  1. DIOVAN [Suspect]
     Active Substance: VALSARTAN
     Indication: Product used for unknown indication
     Dosage: 1 DOSAGE FORM, (40 MG), QD
     Route: 065
     Dates: start: 20210908, end: 20210913
  2. DIOVAN [Suspect]
     Active Substance: VALSARTAN
     Dosage: 1 DOSAGE FORM, (80 MG), QD
     Route: 065
     Dates: start: 20210914, end: 20211029
  3. DIOVAN [Suspect]
     Active Substance: VALSARTAN
     Dosage: 1 DOSAGE FORM, (80 MG), QD
     Route: 065
     Dates: start: 20211101, end: 20211102

REACTIONS (1)
  - Drug eruption [Unknown]
